FAERS Safety Report 8394881-7 (Version None)
Quarter: 2012Q2

REPORT INFORMATION
  Report Type: 
  Country: None (occurrence: None)
  Receive Date: 20120530
  Receipt Date: 20120524
  Transmission Date: 20120825
  Serious: Yes (Hospitalization)
  Sender: FDA-Public Use
  Company Number: US-ELI_LILLY_AND_COMPANY-US201205008526

PATIENT
  Sex: Male
  Weight: 82.086 kg

DRUGS (19)
  1. ADVAIR DISKUS 100/50 [Concomitant]
  2. TYLENOL (CAPLET) [Concomitant]
  3. DIOVAN HCT [Concomitant]
  4. PEMETREXED [Suspect]
     Indication: SQUAMOUS CELL CARCINOMA
     Dosage: 500 MG/M2, EVERY 21 DAYS
     Route: 042
     Dates: start: 20120418
  5. RADIATION [Suspect]
     Indication: SQUAMOUS CELL CARCINOMA
  6. DOXYCYCLINE [Concomitant]
  7. POTASSIUM CHLORIDE [Concomitant]
  8. VENLAFAXINE HYDROCHLORIDE [Concomitant]
  9. FOLIC ACID [Concomitant]
  10. CIPROFLOXACIN HCL [Concomitant]
  11. ROXICET [Concomitant]
  12. MUCINEX [Concomitant]
  13. ZETIA [Concomitant]
  14. LIDOCAINE [Concomitant]
  15. SIMVASTATIN [Concomitant]
  16. COMPAZINE [Concomitant]
     Dosage: UNK
  17. PERSANTINE [Concomitant]
  18. CETUXIMAB [Suspect]
     Indication: SQUAMOUS CELL CARCINOMA
     Dosage: 250 MG/M2, WEEKLY (1/W)
     Route: 042
     Dates: start: 20120411
  19. AMLODIPINE BESYLATE [Concomitant]

REACTIONS (1)
  - DEHYDRATION [None]
